FAERS Safety Report 7656225-5 (Version None)
Quarter: 2011Q3

REPORT INFORMATION
  Report Type: 
  Country: None (occurrence: None)
  Receive Date: 20110801
  Receipt Date: 20110630
  Transmission Date: 20111222
  Serious: Yes (Hospitalization, Other)
  Sender: FDA-Public Use
  Company Number: JP-ACCORD-008364

PATIENT
  Age: 57 Year
  Sex: Male

DRUGS (2)
  1. COMBINATIONS OF ANTINEOPLASTIC AGEN(COMBINATIONS OF ANTINEOPLASTIC AGE [Concomitant]
     Dosage: 120 MG
  2. DOCETAXEL [Suspect]
     Indication: GASTRIC CANCER
     Dosage: 35.00-MG/M2-2.0WEEKS

REACTIONS (5)
  - BRONCHIECTASIS [None]
  - INTERSTITIAL LUNG DISEASE [None]
  - RESPIRATORY FAILURE [None]
  - PLEURAL EFFUSION [None]
  - PYREXIA [None]
